FAERS Safety Report 5573937-8 (Version None)
Quarter: 2007Q4

REPORT INFORMATION
  Report Type: 
  Country: None (occurrence: None)
  Receive Date: 20071220
  Receipt Date: 20071204
  Transmission Date: 20080405
  Serious: Yes (Other)
  Sender: FDA-Public Use
  Company Number: 2007US003122

PATIENT
  Age: 29 Year
  Sex: Female

DRUGS (2)
  1. PROGRAF [Suspect]
     Indication: RENAL TRANSPLANT
     Dosage: 7 MG, UID/QD, ORAL
     Route: 048
  2. PREDNISOLONE ACETATE [Concomitant]

REACTIONS (6)
  - CAESAREAN SECTION [None]
  - DIALYSIS [None]
  - DRUG EXPOSURE DURING PREGNANCY [None]
  - PREGNANCY [None]
  - PROLONGED LABOUR [None]
  - RENAL FAILURE [None]
